FAERS Safety Report 5479875-3 (Version None)
Quarter: 2007Q4

REPORT INFORMATION
  Report Type: 
  Country: None (occurrence: None)
  Receive Date: 20071008
  Receipt Date: 20071001
  Transmission Date: 20080405
  Serious: Yes (Hospitalization)
  Sender: FDA-Public Use
  Company Number: PL-ROXANE LABORATORIES, INC-2007-BP-22119RO

PATIENT
  Age: 59 Year
  Sex: Male

DRUGS (4)
  1. AMLODIPINE [Suspect]
     Indication: HYPERTENSION
  2. HYDROCHLOROTHIAZIDE [Suspect]
     Indication: HYPERTENSION
  3. CARBAMAZEPINE [Suspect]
     Indication: FACIAL NEURALGIA
  4. BISOPROLOL FUMARATE [Concomitant]
     Indication: HYPERTENSION

REACTIONS (6)
  - BRAIN OEDEMA [None]
  - CONVULSION [None]
  - DRUG INEFFECTIVE [None]
  - FACIAL NEURALGIA [None]
  - HYPONATRAEMIA [None]
  - INAPPROPRIATE ANTIDIURETIC HORMONE SECRETION [None]
